FAERS Safety Report 23114773 (Version 1)
Quarter: 2023Q4

REPORT INFORMATION
  Report Type: Spontaneous
  Country: US (occurrence: US)
  Receive Date: 20231027
  Receipt Date: 20231027
  Transmission Date: 20240110
  Serious: Yes (Death)
  Sender: FDA-Public Use
  Company Number: US-SAGENT PHARMACEUTICALS-2023SAG000142

PATIENT

DRUGS (2)
  1. GEMCITABINE [Suspect]
     Active Substance: GEMCITABINE
     Indication: Transitional cell carcinoma
     Dosage: 1 GRAM, QWEEK (1 G IN A 50 ML BAG OF NORMAL SALINE AS INDUCTION INSTILLATIONS WEEKLY FOR 6 WEEKS)
     Route: 042
  2. DOCETAXEL [Suspect]
     Active Substance: DOCETAXEL
     Indication: Transitional cell carcinoma
     Dosage: 37.5 MILLIGRAM, QWEEK (37.5 MG IN A 50 ML BAG OF NORMAL SALINE AS INDUCTION INSTILLATIONS WEEKLY FOR
     Route: 042

REACTIONS (2)
  - Septic shock [Fatal]
  - Pyelonephritis [Fatal]
